FAERS Safety Report 7648614-X (Version None)
Quarter: 2011Q3

REPORT INFORMATION
  Report Type: 
  Country: None (occurrence: None)
  Receive Date: 20110801
  Receipt Date: 20110719
  Transmission Date: 20111222
  Serious: Yes (Hospitalization, Other)
  Sender: FDA-Public Use
  Company Number: PHHY2011US35913

PATIENT
  Sex: Male
  Weight: 98.413 kg

DRUGS (18)
  1. FAMVIR [Concomitant]
     Dosage: 500 MG, BID
     Route: 048
  2. HYDROCORTISONE [Concomitant]
     Dosage: 2.5 %, PRN
  3. EXJADE [Suspect]
     Indication: MYELODYSPLASTIC SYNDROME
     Dosage: 500 MG, UNK
     Route: 048
     Dates: start: 20110314, end: 20110411
  4. FOLIC ACID [Concomitant]
     Dosage: 1 MG, QHS
     Route: 048
  5. KLOR-CON [Concomitant]
     Dosage: 20 MEQ, DAILY
     Route: 048
  6. MAGIC MOUTHWASH [Concomitant]
     Indication: PAIN
     Dosage: 10 ML, PRN
  7. TRIAMTERENE AND HYDROCHLOROTHIAZID [Concomitant]
     Dosage: UNK
     Route: 048
  8. AMLODIPINE BESYLATE [Concomitant]
     Dosage: 10 MG, QHS
     Route: 048
  9. FAMCICLOVIR [Concomitant]
     Dosage: 500 MG, BID
  10. FLUCONAZOLE [Concomitant]
     Dosage: 100 MG, QD
     Route: 048
  11. VITAMIN B6 [Concomitant]
     Dosage: 100 MG, DAILY
     Route: 048
  12. NORVASC [Concomitant]
     Dosage: 10 MG, DAILY
  13. LEVOFLOXACIN [Concomitant]
  14. POTASSIUM CHLORIDE [Concomitant]
  15. VITAMIN D [Concomitant]
     Dosage: 800 U, DAILY
  16. LIPITOR [Concomitant]
     Dosage: 10 MG, DAILY
     Route: 048
  17. LUNESTA [Concomitant]
     Dosage: 2 MG, QHS (PRN)
     Route: 048
  18. OMEPRAZOLE [Concomitant]
     Dosage: 40 MG, QD
     Route: 048

REACTIONS (27)
  - ORTHOPNOEA [None]
  - SUBDURAL HAEMATOMA [None]
  - CONFUSIONAL STATE [None]
  - DEHYDRATION [None]
  - SPLENOMEGALY [None]
  - PULMONARY FIBROSIS [None]
  - LEUKOCYTOSIS [None]
  - ANAEMIA [None]
  - NAUSEA [None]
  - NEPHRITIS [None]
  - THROMBOCYTOPENIA [None]
  - HAEMATURIA [None]
  - FLANK PAIN [None]
  - HYPOPHAGIA [None]
  - ESCHERICHIA TEST POSITIVE [None]
  - MUSCULAR WEAKNESS [None]
  - GAIT DISTURBANCE [None]
  - DIZZINESS [None]
  - SEPSIS [None]
  - KIDNEY ENLARGEMENT [None]
  - DYSURIA [None]
  - HYPOKALAEMIA [None]
  - RASH [None]
  - URINARY TRACT INFECTION [None]
  - URINE OUTPUT INCREASED [None]
  - RENAL FAILURE [None]
  - DYSPNOEA EXERTIONAL [None]
